FAERS Safety Report 26126158 (Version 1)
Quarter: 2025Q4

REPORT INFORMATION
  Report Type: Spontaneous
  Country: US (occurrence: US)
  Receive Date: 20251205
  Receipt Date: 20251205
  Transmission Date: 20260119
  Serious: No
  Sender: NOVO NORDISK
  Company Number: US-NOVOPROD-1347211

PATIENT
  Sex: Male

DRUGS (1)
  1. NOVOLIN N [Suspect]
     Active Substance: INSULIN HUMAN
     Indication: Diabetes mellitus
     Dosage: 6 IU, BID
     Route: 058

REACTIONS (4)
  - Feeling abnormal [Not Recovered/Not Resolved]
  - Dizziness [Not Recovered/Not Resolved]
  - Brain fog [Not Recovered/Not Resolved]
  - Blood glucose increased [Not Recovered/Not Resolved]
